FAERS Safety Report 8328655-X (Version None)
Quarter: 2012Q2

REPORT INFORMATION
  Report Type: 
  Country: None (occurrence: None)
  Receive Date: 20120430
  Receipt Date: 20120412
  Transmission Date: 20120825
  Serious: Yes (Other)
  Sender: FDA-Public Use
  Company Number: NSR_00533_2012

PATIENT

DRUGS (2)
  1. LAMOTRIGINE [Suspect]
     Indication: SCHIZOPHRENIA
     Dosage: (DF [TITRATED UP TO A FINAL DOSAGE OF 100-150 MG/DAY OVER 6-8 WEEKS, 8-24 WEEKS OF TREATMENT])
  2. CLOZAPINE [Concomitant]

REACTIONS (7)
  - REBOUND EFFECT [None]
  - SCHIZOPHRENIA [None]
  - CONDITION AGGRAVATED [None]
  - ANXIETY [None]
  - DRUG WITHDRAWAL SYNDROME [None]
  - DRUG INEFFECTIVE [None]
  - TENSION [None]
